FAERS Safety Report 5229702-4 (Version None)
Quarter: 2007Q1

REPORT INFORMATION
  Report Type: 
  Country: None (occurrence: None)
  Receive Date: 20070201
  Receipt Date: 20070127
  Transmission Date: 20070707
  Serious: Yes (Other)
  Sender: FDA-Public Use
  Company Number: 232631

PATIENT
  Age: 49 Year
  Sex: Female
  Weight: 73 kg

DRUGS (2)
  1. HERCEPTIN [Suspect]
     Indication: BREAST CANCER
     Dosage: 560 MG, 1/MONTH, INTRAVENOUS
     Route: 042
     Dates: start: 20060821
  2. TAMOXIFEN CITRATE [Suspect]
     Indication: BREAST CANCER
     Dosage: 10 MG, QD, ORAL
     Route: 048
     Dates: start: 20060821, end: 20060831

REACTIONS (3)
  - AUTOANTIBODY POSITIVE [None]
  - HYPOTHYROIDISM [None]
  - THYROIDITIS [None]
